FAERS Safety Report 9799316 (Version 5)
Quarter: 2015Q1

REPORT INFORMATION
  Report Type: Spontaneous
  Country: US (occurrence: US)
  Receive Date: 20140106
  Receipt Date: 20150318
  Transmission Date: 20150721
  Serious: Yes (Death, Life-Threatening, Hospitalization, Other)
  Sender: FDA-Public Use
  Company Number: US-MERCK-1401USA000676

PATIENT
  Sex: Male
  Weight: 98.87 kg

DRUGS (10)
  1. DESLORATADINE. [Concomitant]
     Active Substance: DESLORATADINE
     Indication: PRURITUS
     Dosage: 5 MG, QD
     Route: 048
     Dates: start: 20090514
  2. ONDANSETRON HYDROCHLORIDE. [Concomitant]
     Active Substance: ONDANSETRON HYDROCHLORIDE
     Dosage: 8 MG UNK
     Route: 048
     Dates: start: 20100430
  3. SILDENAFIL CITRATE. [Concomitant]
     Active Substance: SILDENAFIL CITRATE
     Dosage: 1 PO 1 HR PRIOR TO INTERCOURSE
     Route: 048
     Dates: start: 20100211
  4. SUCRALFATE. [Concomitant]
     Active Substance: SUCRALFATE
     Dosage: 1 G, QID
     Route: 048
     Dates: start: 20100521
  5. HYDROCHLOROTHIAZIDE. [Concomitant]
     Active Substance: HYDROCHLOROTHIAZIDE
     Dosage: 25 MG, UNK
     Route: 048
     Dates: start: 20100211
  6. METOCLOPRAMIDE HYDROCHLORIDE. [Concomitant]
     Active Substance: METOCLOPRAMIDE HYDROCHLORIDE
     Dosage: 10 MG, QID
     Route: 048
     Dates: start: 20100521
  7. MELOXICAM. [Concomitant]
     Active Substance: MELOXICAM
     Dosage: 15 MG, UNK
     Route: 048
     Dates: start: 20100106
  8. DESONIDE. [Concomitant]
     Active Substance: DESONIDE
     Dosage: 0.5 %, TID
     Route: 061
     Dates: start: 20090514
  9. JANUVIA [Suspect]
     Active Substance: SITAGLIPTIN PHOSPHATE
     Indication: TYPE 2 DIABETES MELLITUS
     Dosage: 100 MG, QD
     Route: 048
     Dates: start: 20100511, end: 20110108
  10. OMEPRAZOLE. [Concomitant]
     Active Substance: OMEPRAZOLE
     Dosage: 49 MG, UNK
     Route: 048
     Dates: start: 20100510

REACTIONS (12)
  - Colon cancer metastatic [Fatal]
  - Respiratory failure [Fatal]
  - Hepatitis C [Unknown]
  - Peptic ulcer [Unknown]
  - Metastases to stomach [Fatal]
  - Pancreatitis [Unknown]
  - Metastases to spleen [Fatal]
  - Pancreatic carcinoma [Fatal]
  - Pancreatic carcinoma metastatic [Fatal]
  - Pancreatic cyst [Unknown]
  - Central venous catheterisation [Unknown]
  - Osteoarthritis [Unknown]

NARRATIVE: CASE EVENT DATE: 201006
